FAERS Safety Report 25130024 (Version 1)
Quarter: 2025Q1

REPORT INFORMATION
  Report Type: Report from Study
  Country: US (occurrence: US)
  Receive Date: 20250327
  Receipt Date: 20250327
  Transmission Date: 20250408
  Serious: Yes (Hospitalization, Other)
  Sender: JOHNSON AND JOHNSON
  Company Number: US-JNJFOC-20250342853

PATIENT
  Age: 74 Year
  Sex: Female

DRUGS (1)
  1. TALVEY [Suspect]
     Active Substance: TALQUETAMAB-TGVS
     Indication: Plasma cell myeloma
     Route: 058
     Dates: start: 20250211

REACTIONS (4)
  - Cytokine release syndrome [Recovered/Resolved with Sequelae]
  - Loss of consciousness [Not Recovered/Not Resolved]
  - Spinal fracture [Not Recovered/Not Resolved]
  - Light chain analysis abnormal [Not Recovered/Not Resolved]

NARRATIVE: CASE EVENT DATE: 20250221
